FAERS Safety Report 6124085-X (Version None)
Quarter: 2009Q1

REPORT INFORMATION
  Report Type: 
  Country: None (occurrence: None)
  Receive Date: 20090316
  Receipt Date: 20081204
  Transmission Date: 20090719
  Serious: No
  Sender: FDA-Public Use
  Company Number: DSA_32814_2008

PATIENT
  Sex: Male

DRUGS (2)
  1. XENAZINE [Suspect]
     Indication: TOURETTE'S DISORDER
     Dosage: (25 MG, 1.5 TABLET TID)
  2. HEPARIN [Concomitant]

REACTIONS (5)
  - AGGRESSION [None]
  - ANGER [None]
  - DISTURBANCE IN ATTENTION [None]
  - INSOMNIA [None]
  - MOOD ALTERED [None]
